FAERS Safety Report 13252509 (Version 2)
Quarter: 2017Q1

REPORT INFORMATION
  Report Type: Report from Study
  Country: CO (occurrence: CO)
  Receive Date: 20170220
  Receipt Date: 20170313
  Transmission Date: 20170428
  Serious: Yes (Death, Hospitalization, Other)
  Sender: FDA-Public Use
  Company Number: CO-ALEXION-A201701585

PATIENT
  Age: 57 Year
  Sex: Male

DRUGS (2)
  1. SOLIRIS [Suspect]
     Active Substance: ECULIZUMAB
     Indication: PAROXYSMAL NOCTURNAL HAEMOGLOBINURIA
     Dosage: 600 MG, QW
     Route: 042
     Dates: start: 20160725, end: 20160816
  2. SOLIRIS [Suspect]
     Active Substance: ECULIZUMAB
     Dosage: 900 MG, Q2W
     Route: 042
     Dates: start: 20161020

REACTIONS (5)
  - Platelet count decreased [Unknown]
  - General physical health deterioration [Unknown]
  - Anaemia [Not Recovered/Not Resolved]
  - Haemolysis [Fatal]
  - Bacterial infection [Unknown]

NARRATIVE: CASE EVENT DATE: 201702
